FAERS Safety Report 6468077-X (Version None)
Quarter: 2009Q4

REPORT INFORMATION
  Report Type: 
  Country: None (occurrence: None)
  Receive Date: 20091127
  Receipt Date: 20091111
  Transmission Date: 20100525
  Serious: Yes (Hospitalization, Other)
  Sender: FDA-Public Use
  Company Number: 1000010296

PATIENT
  Age: 84 Year
  Sex: Female

DRUGS (9)
  1. CITALOPRAM HYDROBROMIDE [Suspect]
     Dosage: 10 MG (10 MG, 1 IN 1 D),ORAL
     Route: 048
     Dates: start: 20090423, end: 20090505
  2. CONCOR [Concomitant]
  3. NOVALGIN [Concomitant]
  4. MCP [Concomitant]
  5. OMEP [Concomitant]
  6. L-THYROXIN [Concomitant]
  7. CALCIUM [Concomitant]
  8. VIGANTOLETTEN [Concomitant]
  9. FOSAMAX [Concomitant]

REACTIONS (9)
  - AGITATION [None]
  - ANXIETY [None]
  - DEPRESSION [None]
  - DIZZINESS [None]
  - FEAR [None]
  - GENERAL PHYSICAL HEALTH DETERIORATION [None]
  - NERVOUSNESS [None]
  - RESTLESSNESS [None]
  - TACHYCARDIA [None]
